FAERS Safety Report 6388907-X (Version None)
Quarter: 2009Q4

REPORT INFORMATION
  Report Type: 
  Country: None (occurrence: None)
  Receive Date: 20091001
  Receipt Date: 20090918
  Transmission Date: 20100525
  Serious: Yes (Death)
  Sender: FDA-Public Use
  Company Number: 1-19498013

PATIENT
  Sex: Female

DRUGS (6)
  1. FENTANYL TRANSDERMAL SYSTEM [Suspect]
     Indication: PAIN
     Dosage: 100MCG/HR EVERY 72 HR,TRANSDERMAL
     Route: 062
     Dates: start: 20070305, end: 20090513
  2. FENTANYL TRANSDERMAL SYSTEM [Suspect]
     Indication: SPONDYLITIS
     Dosage: 100MCG/HR EVERY 72 HR,TRANSDERMAL
     Route: 062
     Dates: start: 20070305, end: 20090513
  3. AMITRIPTYLINE [Concomitant]
  4. MELOXICAM [Concomitant]
  5. CANDESARTAN 4 MG [Concomitant]
  6. GABAPENTIN [Concomitant]

REACTIONS (2)
  - INAPPROPRIATE SCHEDULE OF DRUG ADMINISTRATION [None]
  - OVERDOSE [None]
